FAERS Safety Report 7536154-8 (Version None)
Quarter: 2011Q2

REPORT INFORMATION
  Report Type: 
  Country: None (occurrence: None)
  Receive Date: 20110602
  Receipt Date: 20110524
  Transmission Date: 20111010
  Serious: Yes (Death, Other)
  Sender: FDA-Public Use
  Company Number: BR-ACCORD-009292

PATIENT
  Age: 69 Year
  Sex: Male
  Weight: 54 kg

DRUGS (4)
  1. METOCLOPRAMIDE [Concomitant]
  2. PACLITAXEL [Suspect]
     Indication: GASTRIC CANCER
     Dosage: 80.00-MG/M2- / INTRAVENOUS
     Route: 042
     Dates: start: 20110328
  3. LACTULOSE [Concomitant]
  4. TRAMADOL HCL [Concomitant]

REACTIONS (4)
  - FEBRILE NEUTROPENIA [None]
  - ANAEMIA [None]
  - HAEMATOTOXICITY [None]
  - TUMOUR HAEMORRHAGE [None]
